FAERS Safety Report 25620426 (Version 1)
Quarter: 2025Q3

REPORT INFORMATION
  Report Type: Spontaneous
  Country: JP (occurrence: JP)
  Receive Date: 20250730
  Receipt Date: 20250730
  Transmission Date: 20251020
  Serious: Yes (Hospitalization, Other)
  Sender: Unknown Manufacturer
  Company Number: JP-STRIDES ARCOLAB LIMITED-2025OS000229

PATIENT
  Age: 6 Decade
  Sex: Female

DRUGS (3)
  1. MYCOPHENOLATE MOFETIL [Suspect]
     Active Substance: MYCOPHENOLATE MOFETIL
     Indication: Sjogren^s syndrome
     Route: 065
  2. PREDNISOLONE [Concomitant]
     Active Substance: PREDNISOLONE
     Indication: Sjogren^s syndrome
     Route: 065
  3. ETRETINATE [Concomitant]
     Active Substance: ETRETINATE
     Indication: Generalised pustular psoriasis
     Route: 048

REACTIONS (3)
  - Generalised pustular psoriasis [None]
  - COVID-19 [Unknown]
  - Off label use [Unknown]
